FAERS Safety Report 9286084 (Version 2)
Quarter: 2013Q2

REPORT INFORMATION
  Report Type: Spontaneous
  Country: US (occurrence: US)
  Receive Date: 20130510
  Receipt Date: 20130529
  Transmission Date: 20140414
  Serious: Yes (Death, Life-Threatening)
  Sender: FDA-Public Use
  Company Number: US-BRACCO-009431

PATIENT
  Age: 90 Year
  Sex: Female

DRUGS (4)
  1. READI-CAT [Suspect]
     Indication: COMPUTERISED TOMOGRAM
     Dosage: READI-CT 2 WAS DILUTED WITH 300 ML OF WATER SO IT WOULD PASS THROUGH THE NASOGASTRIC TUBE
     Route: 050
     Dates: start: 20130419, end: 20130419
  2. I.V. SOLUTIONS [Concomitant]
     Route: 042
     Dates: start: 20130415
  3. MORPHINE SULFATE [Concomitant]
     Indication: ABDOMINAL PAIN
     Route: 042
     Dates: start: 20130419
  4. ANTIBIOTICS [Concomitant]
     Dates: start: 20130415

REACTIONS (8)
  - Cardiac arrest [Fatal]
  - Foreign body aspiration [Recovered/Resolved with Sequelae]
  - Acute respiratory failure [Fatal]
  - Septic shock [Fatal]
  - Encephalopathy [Fatal]
  - Loss of consciousness [Not Recovered/Not Resolved]
  - Pneumonia [Unknown]
  - Cough [Unknown]
